FAERS Safety Report 4783347-9 (Version None)
Quarter: 2005Q3

REPORT INFORMATION
  Report Type: 
  Country: None (occurrence: None)
  Receive Date: 20050914
  Receipt Date: 20040721
  Transmission Date: 20060218
  Serious: Yes (Hospitalization)
  Sender: FDA-Public Use
  Company Number: 163-20785-04050216

PATIENT
  Age: 81 Year
  Sex: Male

DRUGS (7)
  1. THALOMID [Suspect]
     Indication: MULTIPLE MYELOMA
     Dosage: 50 MG, TID, ORAL
     Route: 048
     Dates: start: 20040101
  2. IMDUR [Concomitant]
  3. ASPIRIN [Concomitant]
  4. COZAAR [Concomitant]
  5. LIPITOR [Concomitant]
  6. CELEBREX [Concomitant]
  7. DOCUSATE SODIUM (DOCUSATE SODIUM) [Concomitant]

REACTIONS (1)
  - ACUTE CORONARY SYNDROME [None]
